FAERS Safety Report 4699399-0 (Version None)
Quarter: 2005Q2

REPORT INFORMATION
  Report Type: 
  Country: None (occurrence: None)
  Receive Date: 20050622
  Receipt Date: 20050616
  Transmission Date: 20051028
  Serious: Yes (Other)
  Sender: FDA-Public Use
  Company Number: 2005-04-0852

PATIENT
  Age: 73 Year
  Sex: Male
  Weight: 85 kg

DRUGS (1)
  1. AERIUS             (DESLORATADINE)                       ^CLARINEX^ [Suspect]
     Indication: SEASONAL ALLERGY
     Dosage: 5 MG QD ORAL
     Route: 048
     Dates: start: 20050310, end: 20050408

REACTIONS (1)
  - CYTOLYTIC HEPATITIS [None]
